FAERS Safety Report 9375792 (Version 1)
Quarter: 2013Q2

REPORT INFORMATION
  Report Type: Spontaneous
  Country: JM (occurrence: JM)
  Receive Date: 20130628
  Receipt Date: 20130628
  Transmission Date: 20140414
  Serious: Yes (Death)
  Sender: FDA-Public Use
  Company Number: JM-B.I. PHARMACEUTICALS,INC./RIDGEFIELD-2013-CN-01150CN

PATIENT
  Age: 76 Year
  Sex: Male

DRUGS (3)
  1. PRADAX [Suspect]
  2. METFORMIN [Concomitant]
  3. GLIBENCLAMIDE [Concomitant]

REACTIONS (1)
  - Death [Fatal]
